FAERS Safety Report 21263190 (Version 1)
Quarter: 2022Q3

REPORT INFORMATION
  Report Type: Report from Study
  Country: BE (occurrence: BE)
  Receive Date: 20220828
  Receipt Date: 20220828
  Transmission Date: 20221027
  Serious: Yes (Hospitalization, Other)
  Sender: FDA-Public Use
  Company Number: BE-BIOGEN-2022BI01145117

PATIENT
  Age: 54 Year
  Sex: Female

DRUGS (10)
  1. TYSABRI [Suspect]
     Active Substance: NATALIZUMAB
     Indication: Relapsing-remitting multiple sclerosis
     Route: 050
     Dates: start: 20080624, end: 20220119
  2. TYSABRI [Suspect]
     Active Substance: NATALIZUMAB
     Route: 050
     Dates: end: 20211209
  3. DALFAMPRIDINE [Suspect]
     Active Substance: DALFAMPRIDINE
     Indication: Product used for unknown indication
     Dosage: (TABL RETARD 10 MG), 10 MG, 2/D, 8U 17U (ASSESSED AS 8H AND 17H)
     Route: 050
  4. BEFACT FORTE [Concomitant]
     Indication: Product used for unknown indication
     Dosage: BEFACT FORTE (TABL NF), 1 TABL, 1/D, 8U (ASSESSED AS 8H)
     Route: 050
  5. FLUOXETINE [Concomitant]
     Active Substance: FLUOXETINE HYDROCHLORIDE
     Indication: Product used for unknown indication
     Dosage: 20 MG, 1/D, 8U (ASSESSED AS 8H)
     Route: 050
  6. HALOPERIDOL [Concomitant]
     Active Substance: HALOPERIDOL
     Indication: Product used for unknown indication
     Dosage: SERENASE, 2.5 MG, 1/D, 21U (ASSESSED AS 21H)
     Route: 050
  7. VESICARE [Concomitant]
     Active Substance: SOLIFENACIN SUCCINATE
     Indication: Product used for unknown indication
     Dosage: VESICARE, 10 MG, 1/D, 8U (ASSESSED AS 8H)
     Route: 050
  8. VITAMIN D [Concomitant]
     Active Substance: VITAMIN D NOS
     Indication: Product used for unknown indication
     Dosage: VITAMIN D EVERY TWO WEEKS
     Route: 050
  9. TRAMADOL HYDROCHLORIDE [Concomitant]
     Active Substance: TRAMADOL HYDROCHLORIDE
     Indication: Product used for unknown indication
     Dosage: CONTRAMAL RETARD 2 X 100 MG
     Route: 050
  10. LIORESAL [Concomitant]
     Active Substance: BACLOFEN
     Indication: Product used for unknown indication
     Dosage: LIORESAL 3 X 5 MG
     Route: 050

REACTIONS (1)
  - Femur fracture [Recovered/Resolved]

NARRATIVE: CASE EVENT DATE: 20220117
